FAERS Safety Report 4599763-4 (Version None)
Quarter: 2005Q1

REPORT INFORMATION
  Report Type: 
  Country: None (occurrence: None)
  Receive Date: 20050303
  Receipt Date: 20050216
  Transmission Date: 20050727
  Serious: Yes (Other)
  Sender: FDA-Public Use
  Company Number: 8009106

PATIENT
  Sex: Female

DRUGS (1)
  1. KEPPRA [Suspect]
     Dosage: 75 MG /D PO; 500 MCG 1/D PO
     Route: 048
     Dates: start: 20040216, end: 20040216

REACTIONS (1)
  - MEDICATION ERROR [None]
